FAERS Safety Report 9008121 (Version 1)
Quarter: 2013Q1

REPORT INFORMATION
  Report Type: Spontaneous
  Country: FR (occurrence: FR)
  Receive Date: 20130111
  Receipt Date: 20130111
  Transmission Date: 20140127
  Serious: Yes (Disabling)
  Sender: FDA-Public Use
  Company Number: FR-MERCK-1208FRA009894

PATIENT
  Sex: Male
  Weight: 57 kg

DRUGS (5)
  1. NASONEX [Suspect]
     Indication: NASAL POLYPS
     Dosage: 2 DF, BID
     Dates: start: 20120124, end: 20120308
  2. NASONEX [Suspect]
     Indication: NASAL OBSTRUCTION
     Dosage: 2 DF, BID
     Route: 045
     Dates: start: 20120322, end: 20120325
  3. SERETIDE [Concomitant]
     Indication: CHRONIC OBSTRUCTIVE PULMONARY DISEASE
     Dosage: UNK, BID
     Route: 048
     Dates: start: 1992
  4. SOLUPRED [Concomitant]
     Indication: NASAL POLYPS
     Dosage: 20 MG, TID
  5. SOLUPRED [Concomitant]
     Indication: NASAL OBSTRUCTION

REACTIONS (13)
  - Sense of oppression [Recovered/Resolved]
  - Malaise [Recovered/Resolved]
  - Scab [Recovered/Resolved]
  - Palpitations [Recovered/Resolved]
  - Vertigo [Recovered/Resolved]
  - Cough [Recovered/Resolved]
  - Chest pain [Recovered/Resolved]
  - Inflammation [Recovered/Resolved]
  - Hypoventilation [Recovered/Resolved]
  - Pyrexia [Recovered/Resolved]
  - Epistaxis [Recovered/Resolved]
  - Mucosal dryness [Recovered/Resolved]
  - Nasal polyps [Recovered/Resolved]
